FAERS Safety Report 5382760-9 (Version None)
Quarter: 2007Q2

REPORT INFORMATION
  Report Type: 
  Country: None (occurrence: None)
  Receive Date: 20070629
  Receipt Date: 20070223
  Transmission Date: 20071010
  Serious: Yes (Hospitalization)
  Sender: FDA-Public Use
  Company Number: US200702005259

PATIENT
  Age: 72 Year
  Sex: Female

DRUGS (4)
  1. HUMALOG PEN [Suspect]
     Dosage: AS NEEDED
  2. HUMULIN N [Suspect]
     Dosage: 15 U, EACH EVENING
  3. HUMALOG PEN [Concomitant]
  4. HUMULIN N PEN (HUMULIN N PEN) PEN, DISPOSABLE [Concomitant]

REACTIONS (1)
  - RENAL TRANSPLANT [None]
